FAERS Safety Report 9747610 (Version 1)
Quarter: 2013Q4

REPORT INFORMATION
  Report Type: Spontaneous
  Country: US (occurrence: None)
  Receive Date: 20131211
  Receipt Date: 20131211
  Transmission Date: 20140711
  Serious: Yes (Other)
  Sender: FDA-Public Use
  Company Number: None

PATIENT
  Age: 7 Year
  Sex: Male
  Weight: 24.95 kg

DRUGS (1)
  1. METHYLPHENIDATE HCL [Suspect]
     Indication: ATTENTION DEFICIT/HYPERACTIVITY DISORDER
     Dosage: 1 ONCE DAILY, TAKEN BY MOUTH
     Dates: start: 20130501, end: 20130731

REACTIONS (5)
  - Product substitution issue [None]
  - Disturbance in attention [None]
  - Psychomotor hyperactivity [None]
  - Abnormal behaviour [None]
  - Impulsive behaviour [None]
